FAERS Safety Report 5591575-8 (Version None)
Quarter: 2007Q4

REPORT INFORMATION
  Report Type: 
  Country: None (occurrence: None)
  Receive Date: 20071212
  Receipt Date: 20070611
  Transmission Date: 20080405
  Serious: Yes (Hospitalization, Other)
  Sender: FDA-Public Use
  Company Number: USA-2007-0027843

PATIENT
  Age: 45 Year
  Sex: Female

DRUGS (6)
  1. OXYCONTIN [Suspect]
     Indication: PAIN
     Dosage: 40 MG, Q12H
  2. ALCOHOL (ETHANOL) [Suspect]
     Indication: ALCOHOL USE
  3. AMBIEN [Concomitant]
  4. KLONOPIN [Concomitant]
  5. LAMICTAL [Concomitant]
  6. CYMBALTA [Concomitant]

REACTIONS (2)
  - GAIT DISTURBANCE [None]
  - MULTIPLE DRUG OVERDOSE ACCIDENTAL [None]
